FAERS Safety Report 8488525-3 (Version None)
Quarter: 2012Q3

REPORT INFORMATION
  Report Type: 
  Country: None (occurrence: None)
  Receive Date: 20120705
  Receipt Date: 20120626
  Transmission Date: 20120928
  Serious: Yes (Life-Threatening, Hospitalization)
  Sender: FDA-Public Use
  Company Number: US-JNJFOC-20110908856

PATIENT
  Age: 8 Month
  Sex: Male

DRUGS (1)
  1. DURAGESIC-100 [Suspect]
     Indication: INTENTIONAL DRUG MISUSE
     Route: 048

REACTIONS (8)
  - CYANOSIS [None]
  - ACCIDENTAL DRUG INTAKE BY CHILD [None]
  - INTENTIONAL DRUG MISUSE [None]
  - OFF LABEL USE [None]
  - HYPOTONIA [None]
  - SOMNOLENCE [None]
  - LOSS OF CONSCIOUSNESS [None]
  - PNEUMONIA ASPIRATION [None]
